FAERS Safety Report 16141466 (Version 1)
Quarter: 2019Q2

REPORT INFORMATION
  Report Type: Spontaneous
  Country: US (occurrence: US)
  Receive Date: 20190401
  Receipt Date: 20190401
  Transmission Date: 20190711
  Serious: No
  Sender: FDA-Public Use
  Company Number: US-BAYER-2019-062005

PATIENT

DRUGS (1)
  1. CLARITIN [Suspect]
     Active Substance: LORATADINE
     Indication: MASTOCYTIC ENTEROCOLITIS
     Dosage: 2 DF

REACTIONS (2)
  - Product use in unapproved indication [None]
  - Extra dose administered [Unknown]
